FAERS Safety Report 25385821 (Version 1)
Quarter: 2025Q2

REPORT INFORMATION
  Report Type: Spontaneous
  Country: JP (occurrence: JP)
  Receive Date: 20250602
  Receipt Date: 20250602
  Transmission Date: 20250717
  Serious: Yes (Death)
  Sender: ELI LILLY AND COMPANY
  Company Number: JP-Merck Healthcare KGaA-2025026248

PATIENT

DRUGS (2)
  1. CETUXIMAB [Suspect]
     Active Substance: CETUXIMAB
     Indication: Head and neck cancer
     Dosage: 250 MG/M2, WEEKLY (1/W)
     Route: 041
  2. PACLITAXEL [Suspect]
     Active Substance: PACLITAXEL
     Indication: Head and neck cancer
     Route: 065

REACTIONS (1)
  - Encephalopathy [Fatal]
